FAERS Safety Report 7377722-6 (Version None)
Quarter: 2011Q1

REPORT INFORMATION
  Report Type: 
  Country: None (occurrence: None)
  Receive Date: 20110328
  Receipt Date: 20101007
  Transmission Date: 20110831
  Serious: Yes (Hospitalization)
  Sender: FDA-Public Use
  Company Number: US-BAYER-201013584NA

PATIENT
  Sex: Female
  Weight: 79.091 kg

DRUGS (4)
  1. LEXAPRO [Concomitant]
  2. YAZ [Suspect]
     Indication: MENSTRUATION IRREGULAR
     Dosage: UNK UNK, UNK
     Route: 048
     Dates: start: 20071201, end: 20080125
  3. TYLENOL PM [Concomitant]
  4. YAZ [Suspect]
     Indication: PREMENSTRUAL SYNDROME

REACTIONS (7)
  - DEEP VEIN THROMBOSIS [None]
  - ABASIA [None]
  - PULMONARY INFARCTION [None]
  - OEDEMA PERIPHERAL [None]
  - SKIN DISCOLOURATION [None]
  - THROMBOSIS [None]
  - PULMONARY EMBOLISM [None]
